FAERS Safety Report 8538471-1 (Version None)
Quarter: 2012Q3

REPORT INFORMATION
  Report Type: 
  Country: None (occurrence: None)
  Receive Date: 20120718
  Receipt Date: 20120718
  Transmission Date: 20120928
  Serious: No
  Sender: FDA-Public Use
  Company Number: None

PATIENT
  Age: 36 Year
  Sex: Female
  Weight: 27.2158 kg

DRUGS (1)
  1. ZYVOX [Suspect]
     Indication: INFECTION
     Dosage: 600 MG EVERY 12 HOURS  2 TIMES A DAY
     Dates: start: 20120314, end: 20120420

REACTIONS (5)
  - VOMITING [None]
  - ALOPECIA [None]
  - HYPOPHAGIA [None]
  - PAIN [None]
  - DIARRHOEA [None]
